FAERS Safety Report 17577037 (Version 3)
Quarter: 2023Q2

REPORT INFORMATION
  Report Type: Spontaneous
  Country: US (occurrence: US)
  Receive Date: 20200324
  Receipt Date: 20230411
  Transmission Date: 20230721
  Serious: Yes (Other)
  Sender: FDA-Public Use
  Company Number: US-GILEAD-2020-0456126

PATIENT
  Age: 44 Year
  Sex: Male
  Weight: 77 kg

DRUGS (48)
  1. VIREAD [Suspect]
     Active Substance: TENOFOVIR DISOPROXIL FUMARATE
     Indication: HIV infection
     Dosage: UNK
     Route: 048
     Dates: start: 2004, end: 201412
  2. COMPLERA [Suspect]
     Active Substance: EMTRICITABINE\RILPIVIRINE HYDROCHLORIDE\TENOFOVIR DISOPROXIL FUMARATE
     Indication: HIV infection
     Dosage: UNK
     Route: 048
     Dates: start: 2014, end: 2015
  3. TRUVADA [Suspect]
     Active Substance: EMTRICITABINE\TENOFOVIR DISOPROXIL FUMARATE
     Indication: HIV infection
     Dosage: UNK
     Route: 048
     Dates: start: 201501, end: 201610
  4. DESCOVY [Concomitant]
     Active Substance: EMTRICITABINE\TENOFOVIR ALAFENAMIDE FUMARATE
  5. BUTALBITAL, ACETAMINOPHEN, AND CAFFEINE [Concomitant]
     Active Substance: ACETAMINOPHEN\BUTALBITAL\CAFFEINE
  6. AZITHROMYCIN [Concomitant]
     Active Substance: AZITHROMYCIN
  7. BUPROPION [Concomitant]
     Active Substance: BUPROPION
  8. BIKTARVY [Concomitant]
     Active Substance: BICTEGRAVIR SODIUM\EMTRICITABINE\TENOFOVIR ALAFENAMIDE FUMARATE
  9. CEPHALEXIN [Concomitant]
     Active Substance: CEPHALEXIN
  10. CIPROFLOXACIN [Concomitant]
     Active Substance: CIPROFLOXACIN
  11. CLONAZEPAM [Concomitant]
     Active Substance: CLONAZEPAM
  12. FLECAINIDE [Concomitant]
     Active Substance: FLECAINIDE
  13. DEXILANT [Concomitant]
     Active Substance: DEXLANSOPRAZOLE
  14. EPIVIR [Concomitant]
     Active Substance: LAMIVUDINE
  15. FAMCICLOVIR [Concomitant]
     Active Substance: FAMCICLOVIR
  16. FENOFIBRATE [Concomitant]
     Active Substance: FENOFIBRATE
  17. LEVOFLOXACIN [Concomitant]
     Active Substance: LEVOFLOXACIN
  18. METOPROLOL [Concomitant]
     Active Substance: METOPROLOL
  19. NEXIUM I.V. [Concomitant]
     Active Substance: ESOMEPRAZOLE SODIUM
  20. NITROSTAT [Concomitant]
     Active Substance: NITROGLYCERIN
  21. PANTOPRAZOLE [Concomitant]
     Active Substance: PANTOPRAZOLE
  22. PREDNISONE [Concomitant]
     Active Substance: PREDNISONE
  23. RANITIDINE [Concomitant]
     Active Substance: RANITIDINE
  24. RAPAFLO [Concomitant]
     Active Substance: SILODOSIN
  25. SERTRALINE [Concomitant]
     Active Substance: SERTRALINE HYDROCHLORIDE
  26. SUSTIVA [Concomitant]
     Active Substance: EFAVIRENZ
  27. TAMIFLU [Concomitant]
     Active Substance: OSELTAMIVIR PHOSPHATE
  28. TAMSULOSIN [Concomitant]
     Active Substance: TAMSULOSIN
  29. FLECAINIDE ACETATE [Concomitant]
     Active Substance: FLECAINIDE ACETATE
  30. MELATONIN [Concomitant]
     Active Substance: MELATONIN
  31. ZOLOFT [Concomitant]
     Active Substance: SERTRALINE HYDROCHLORIDE
  32. FLECAINIDE [Concomitant]
     Active Substance: FLECAINIDE
  33. ALENDRONATE [Concomitant]
     Active Substance: ALENDRONATE SODIUM
  34. TIVICAY [Concomitant]
     Active Substance: DOLUTEGRAVIR SODIUM
  35. PROZAC [Concomitant]
     Active Substance: FLUOXETINE HYDROCHLORIDE
  36. WELLBUTRIN [Concomitant]
     Active Substance: BUPROPION HYDROCHLORIDE
  37. AMLODIPINE [Concomitant]
     Active Substance: AMLODIPINE BESYLATE
  38. ACETAMINOPHEN\CODEINE PHOSPHATE [Concomitant]
     Active Substance: ACETAMINOPHEN\CODEINE PHOSPHATE
  39. BACLOFEN [Concomitant]
     Active Substance: BACLOFEN
  40. CEFDINIR [Concomitant]
     Active Substance: CEFDINIR
  41. CYCLOBENZAPRINE [Concomitant]
     Active Substance: CYCLOBENZAPRINE
  42. DIAZEPAM [Concomitant]
     Active Substance: DIAZEPAM
  43. GABAPENTIN [Concomitant]
     Active Substance: GABAPENTIN
  44. MELOXICAM [Concomitant]
     Active Substance: MELOXICAM
  45. METHOCARBAMOL [Concomitant]
     Active Substance: METHOCARBAMOL
  46. METHYLPREDNISOLONE [Concomitant]
     Active Substance: METHYLPREDNISOLONE
  47. NITROGLYCERIN [Concomitant]
     Active Substance: NITROGLYCERIN
  48. TRAMADOL [Concomitant]
     Active Substance: TRAMADOL

REACTIONS (14)
  - Renal impairment [Not Recovered/Not Resolved]
  - Osteonecrosis [Unknown]
  - Osteoporosis [Not Recovered/Not Resolved]
  - Renal failure [Unknown]
  - Tibia fracture [Recovered/Resolved]
  - Ankle fracture [Unknown]
  - Spinal osteoarthritis [Unknown]
  - Blood creatinine increased [Not Recovered/Not Resolved]
  - Bone density decreased [Unknown]
  - Pain [Not Recovered/Not Resolved]
  - Emotional distress [Not Recovered/Not Resolved]
  - Anxiety [Not Recovered/Not Resolved]
  - Anhedonia [Not Recovered/Not Resolved]
  - Economic problem [Unknown]

NARRATIVE: CASE EVENT DATE: 20100401
